FAERS Safety Report 5603553-0 (Version None)
Quarter: 2008Q1

REPORT INFORMATION
  Report Type: 
  Country: None (occurrence: None)
  Receive Date: 20080122
  Receipt Date: 20080103
  Transmission Date: 20080703
  Serious: Yes (Other)
  Sender: FDA-Public Use
  Company Number: ALK_00512_2008

PATIENT
  Sex: Male
  Weight: 108.8633 kg

DRUGS (7)
  1. VIVITROL [Suspect]
     Indication: ALCOHOLISM
     Dosage: (380 MG 1X/MONTH INTRAMUSCULAR)
     Route: 030
     Dates: start: 20060901
  2. SEROQUEL [Concomitant]
  3. AMBIEN CR [Concomitant]
  4. PROTONIX /01263201/ [Concomitant]
  5. EQUALINE (MVT) [Concomitant]
  6. ZOLOFT [Concomitant]
  7. VITAMIN B12 NOS [Concomitant]

REACTIONS (8)
  - ALCOHOL USE [None]
  - CONDITION AGGRAVATED [None]
  - DRUG INEFFECTIVE [None]
  - DYSPNOEA [None]
  - GASTRIC DISORDER [None]
  - HEPATIC CIRRHOSIS [None]
  - NAUSEA [None]
  - VOMITING [None]
